FAERS Safety Report 7601424-1 (Version None)
Quarter: 2011Q3

REPORT INFORMATION
  Report Type: 
  Country: None (occurrence: None)
  Receive Date: 20110711
  Receipt Date: 20110626
  Transmission Date: 20111222
  Serious: Yes (Death, Hospitalization)
  Sender: FDA-Public Use
  Company Number: FR-MERCK-1106FRA00124

PATIENT
  Age: 93 Year
  Sex: Female
  Weight: 44 kg

DRUGS (2)
  1. JANUVIA [Suspect]
     Indication: TYPE 2 DIABETES MELLITUS
     Route: 048
     Dates: start: 20100326, end: 20110401
  2. INSULIN [Concomitant]
     Route: 065

REACTIONS (2)
  - SPINAL COMPRESSION FRACTURE [None]
  - FAILURE TO THRIVE [None]
